FAERS Safety Report 18654926 (Version 1)
Quarter: 2020Q4

REPORT INFORMATION
  Report Type: Spontaneous
  Country: GB (occurrence: GB)
  Receive Date: 20201223
  Receipt Date: 20201223
  Transmission Date: 20210114
  Serious: Yes (Other)
  Sender: FDA-Public Use
  Company Number: GB-NOVOPROD-774370

PATIENT
  Age: 69 Year
  Sex: Male
  Weight: 80.73 kg

DRUGS (1)
  1. OZEMPIC [Suspect]
     Active Substance: SEMAGLUTIDE
     Indication: HYPERCHOLESTEROLAEMIA
     Dosage: 0.5 MG
     Route: 051
     Dates: start: 20200506

REACTIONS (2)
  - Product use in unapproved indication [Unknown]
  - Gout [Not Recovered/Not Resolved]

NARRATIVE: CASE EVENT DATE: 20200507
